FAERS Safety Report 5090141-0 (Version None)
Quarter: 2006Q3

REPORT INFORMATION
  Report Type: 
  Country: None (occurrence: None)
  Receive Date: 20060828
  Receipt Date: 20060717
  Transmission Date: 20061208
  Serious: Yes (Other)
  Sender: FDA-Public Use
  Company Number: US-ROCHE-456002

PATIENT
  Age: 47 Year
  Sex: Female

DRUGS (5)
  1. PEGASYS [Suspect]
     Dosage: ROUTE REPORTED AS INJ
     Route: 050
     Dates: start: 20051127, end: 20060625
  2. PEGASYS [Suspect]
     Dosage: STRENGTH AND FORMULATION: 180MCG/0.5CC
     Route: 050
     Dates: start: 20060821
  3. COPEGUS [Suspect]
     Route: 048
     Dates: start: 20051127, end: 20060625
  4. COPEGUS [Suspect]
     Dosage: STRENGTH AND FORMULATION: 200 MG
     Route: 048
     Dates: start: 20060821
  5. MILK THISTLE [Concomitant]
     Route: 048

REACTIONS (9)
  - DEHYDRATION [None]
  - DEPRESSION [None]
  - DIZZINESS [None]
  - ELECTRIC SHOCK [None]
  - LOSS OF CONSCIOUSNESS [None]
  - PAROSMIA [None]
  - RENAL DISORDER [None]
  - WEIGHT DECREASED [None]
  - WEIGHT INCREASED [None]
